FAERS Safety Report 16856788 (Version 6)
Quarter: 2019Q4

REPORT INFORMATION
  Report Type: Spontaneous
  Country: US (occurrence: US)
  Receive Date: 20190926
  Receipt Date: 20191202
  Transmission Date: 20200122
  Serious: No
  Sender: FDA-Public Use
  Company Number: US-JNJFOC-20190925353

PATIENT
  Age: 79 Year
  Sex: Female
  Weight: 52.21 kg

DRUGS (2)
  1. TREMFYA [Suspect]
     Active Substance: GUSELKUMAB
     Indication: PSORIASIS
     Route: 058
     Dates: start: 201905
  2. TREMFYA [Suspect]
     Active Substance: GUSELKUMAB
     Route: 058

REACTIONS (9)
  - Accidental exposure to product [Unknown]
  - Cough [Not Recovered/Not Resolved]
  - Hypersensitivity [Recovered/Resolved]
  - Hypoacusis [Unknown]
  - Underdose [Unknown]
  - Product dose omission [Not Recovered/Not Resolved]
  - Psoriasis [Recovering/Resolving]
  - Syringe issue [Unknown]
  - Wheezing [Not Recovered/Not Resolved]

NARRATIVE: CASE EVENT DATE: 20190807
